FAERS Safety Report 25583949 (Version 1)
Quarter: 2025Q3

REPORT INFORMATION
  Report Type: Other
  Country: GB (occurrence: GB)
  Receive Date: 20250721
  Receipt Date: 20250721
  Transmission Date: 20251020
  Serious: Yes (Hospitalization, Other)
  Sender: GLENMARK
  Company Number: None

PATIENT
  Age: 51 Year
  Sex: Female
  Weight: 66 kg

DRUGS (2)
  1. TOPIRAMATE [Suspect]
     Active Substance: TOPIRAMATE
     Indication: Migraine
     Dosage: UNK, QD (LOWEST DOSE 1 PER DAY)
     Route: 065
     Dates: start: 20181101, end: 20190201
  2. RIZATRIPTAN [Concomitant]
     Active Substance: RIZATRIPTAN
     Indication: Migraine
     Route: 065
     Dates: start: 20150101, end: 20220101

REACTIONS (6)
  - Colitis microscopic [Unknown]
  - Diarrhoea [Not Recovered/Not Resolved]
  - Feeding disorder [Unknown]
  - Mood altered [Unknown]
  - Weight decreased [Unknown]
  - Impaired work ability [Unknown]

NARRATIVE: CASE EVENT DATE: 20191206
